FAERS Safety Report 6776735-2 (Version None)
Quarter: 2010Q2

REPORT INFORMATION
  Report Type: 
  Country: None (occurrence: None)
  Receive Date: 20100617
  Receipt Date: 20100617
  Transmission Date: 20101027
  Serious: Yes (Hospitalization)
  Sender: FDA-Public Use
  Company Number: None

PATIENT
  Sex: Female

DRUGS (2)
  1. WARFARIN SODIUM [Suspect]
     Indication: CEREBROVASCULAR ACCIDENT
     Dosage: 7.5 MG QHS
     Dates: start: 20100111, end: 20100112
  2. WARFARIN SODIUM [Suspect]
     Dosage: 10 MG QHS
     Dates: start: 20100112, end: 20100113

REACTIONS (1)
  - INTERNATIONAL NORMALISED RATIO INCREASED [None]
